FAERS Safety Report 6686330-1 (Version None)
Quarter: 2010Q2

REPORT INFORMATION
  Report Type: 
  Country: None (occurrence: None)
  Receive Date: 20100419
  Receipt Date: 20100409
  Transmission Date: 20101027
  Serious: Yes (Hospitalization, Other)
  Sender: FDA-Public Use
  Company Number: HQWYE304321JUL04

PATIENT
  Sex: Female

DRUGS (3)
  1. PREMPRO [Suspect]
     Indication: HORMONE REPLACEMENT THERAPY
  2. ESTRATEST [Suspect]
  3. PROMETRIUM [Suspect]

REACTIONS (2)
  - BLOOD PRESSURE INCREASED [None]
  - CARDIAC DISORDER [None]
